FAERS Safety Report 14657400 (Version 2)
Quarter: 2018Q3

REPORT INFORMATION
  Report Type: Spontaneous
  Country: US (occurrence: US)
  Receive Date: 20180320
  Receipt Date: 20180809
  Transmission Date: 20181010
  Serious: No
  Sender: FDA-Public Use
  Company Number: US-ASTRAZENECA-2018SE22173

PATIENT
  Age: 24517 Day
  Sex: Male
  Weight: 79.4 kg

DRUGS (1)
  1. SYMBICORT [Suspect]
     Active Substance: BUDESONIDE\FORMOTEROL FUMARATE DIHYDRATE
     Indication: ASTHMA
     Dosage: 160/4.5MCG 120?DOSE INHALER, TWO PUFFS TWO TIMES A DAY
     Route: 055

REACTIONS (6)
  - Wheezing [Not Recovered/Not Resolved]
  - Dementia [Not Recovered/Not Resolved]
  - Intentional product misuse [Not Recovered/Not Resolved]
  - Device issue [Not Recovered/Not Resolved]
  - Drug dose omission [Unknown]
  - Off label use [Not Recovered/Not Resolved]

NARRATIVE: CASE EVENT DATE: 20180217
